FAERS Safety Report 10570101 (Version 1)
Quarter: 2014Q4

REPORT INFORMATION
  Report Type: Spontaneous
  Country: US (occurrence: None)
  Receive Date: 20141106
  Receipt Date: 20141106
  Transmission Date: 20150529
  Serious: No
  Sender: FDA-Public Use
  Company Number: None

PATIENT
  Age: 78 Year
  Sex: Female
  Weight: 67.59 kg

DRUGS (7)
  1. DEXILANT [Concomitant]
     Active Substance: DEXLANSOPRAZOLE
  2. XANAX [Concomitant]
     Active Substance: ALPRAZOLAM
  3. ONE A-DAY VITAMINS [Concomitant]
  4. STOOL SOFTNERS [Concomitant]
  5. PREMARIN [Concomitant]
     Active Substance: ESTROGENS, CONJUGATED
  6. ZOCOR [Concomitant]
     Active Substance: SIMVASTATIN
  7. HYDROCODONE, ACETAMINOPHEN [Suspect]
     Active Substance: ACETAMINOPHEN\HYDROCODONE BITARTRATE
     Indication: BACK DISORDER
     Dosage: 3 PILLS
     Route: 048
     Dates: start: 20140601

REACTIONS (1)
  - Fatigue [None]

NARRATIVE: CASE EVENT DATE: 20140601
